FAERS Safety Report 4381753-8 (Version None)
Quarter: 2004Q2

REPORT INFORMATION
  Report Type: 
  Country: None (occurrence: None)
  Receive Date: 20040603
  Receipt Date: 20030805
  Transmission Date: 20050107
  Serious: Yes (Hospitalization)
  Sender: FDA-Public Use
  Company Number: 200317125US

PATIENT
  Age: 60 Year
  Sex: Female
  Weight: 60 kg

DRUGS (23)
  1. LOVENOX [Suspect]
     Indication: DEEP VEIN THROMBOSIS
     Route: 048
     Dates: start: 20030505, end: 20030513
  2. TRACLEER [Suspect]
     Indication: PULMONARY HYPERTENSION
     Dosage: 31.25 MG QD PO
     Route: 048
     Dates: start: 20030509
  3. TRACLEER [Suspect]
     Indication: PULMONARY HYPERTENSION
     Dosage: 31.25 MG BID PO
     Route: 048
     Dates: start: 20030509, end: 20030619
  4. TRACLEER [Suspect]
     Indication: PULMONARY HYPERTENSION
     Dosage: 62.5 MG BID PO
     Route: 048
     Dates: start: 20030620
  5. NEORAL [Concomitant]
  6. MYCOPHENOLATE MOFETIL (CELLCEPT) [Concomitant]
  7. PREDNISONE [Concomitant]
  8. DIFLUCAN [Concomitant]
  9. SULFAMETHOXAZOLE, TRIMETHOPRIM (SEPTRA) [Concomitant]
  10. PANTOPRAZOLE [Concomitant]
  11. SILDENAFIL CITRATE (VIAGRA) [Concomitant]
  12. PROZAC [Concomitant]
  13. DIGOXIN [Concomitant]
  14. CALCITONIN, SALMON (MIACALCIN) [Concomitant]
  15. FOSAMAX [Concomitant]
  16. CALCIUM CARBONATE [Concomitant]
  17. VITAMIN D [Concomitant]
  18. FUROSEMIDE [Concomitant]
  19. REGLAN [Concomitant]
  20. LOPERAMIDE HYDROCHLORIDE [Concomitant]
  21. TYLENOL [Concomitant]
  22. HEPARIN [Concomitant]
  23. FLOLAN [Concomitant]

REACTIONS (1)
  - HAEMATOMA [None]
